FAERS Safety Report 7901161-X (Version None)
Quarter: 2011Q4

REPORT INFORMATION
  Report Type: 
  Country: None (occurrence: None)
  Receive Date: 20111108
  Receipt Date: 20111102
  Transmission Date: 20120403
  Serious: Yes (Hospitalization)
  Sender: FDA-Public Use
  Company Number: FR-SANOFI-AVENTIS-2011SA071941

PATIENT
  Age: 68 Year
  Sex: Male

DRUGS (12)
  1. CLAFORAN [Suspect]
     Indication: KLEBSIELLA INFECTION
     Route: 042
     Dates: start: 20110915, end: 20110924
  2. TADENAN [Concomitant]
     Route: 048
  3. LASIX [Concomitant]
     Route: 065
  4. TRIMEPRAZINE TARTRATE [Concomitant]
     Route: 048
  5. TAMSULOSIN HCL [Concomitant]
     Route: 048
  6. CIPROFLOXACIN [Concomitant]
     Route: 065
  7. TRAMADOL HCL [Concomitant]
     Route: 065
  8. POTASSIUM CHLORIDE [Concomitant]
     Route: 048
  9. LACTULOSE [Concomitant]
     Route: 048
  10. ASPIRIN [Concomitant]
     Route: 065
  11. CALCIPARINE [Concomitant]
     Route: 051
  12. NEXIUM [Concomitant]
     Route: 048

REACTIONS (1)
  - RENAL FAILURE [None]
